FAERS Safety Report 9344618 (Version 1)
Quarter: 2013Q2

REPORT INFORMATION
  Report Type: Spontaneous
  Country: FR (occurrence: FR)
  Receive Date: 20130612
  Receipt Date: 20130612
  Transmission Date: 20140414
  Serious: Yes (Death, Hospitalization)
  Sender: FDA-Public Use
  Company Number: PHHY2013FR059560

PATIENT
  Age: 86 Year
  Sex: 0

DRUGS (1)
  1. TRAMADOL [Suspect]

REACTIONS (2)
  - Toxicity to various agents [Fatal]
  - Coma [Unknown]
